FAERS Safety Report 19242453 (Version 2)
Quarter: 2021Q2

REPORT INFORMATION
  Report Type: Report from Study
  Country: US (occurrence: US)
  Receive Date: 20210510
  Receipt Date: 20210618
  Transmission Date: 20210717
  Serious: No
  Sender: FDA-Public Use
  Company Number: US-ORGANON-O2105USA000198

PATIENT
  Age: 25 Year
  Sex: Female
  Weight: 107.94 kg

DRUGS (1)
  1. IMPLANON [Suspect]
     Active Substance: ETONOGESTREL
     Indication: CONTRACEPTION
     Dosage: 68 MILLIGRAM; 1 ROD (STRENGTH 68 MILLIGRAM)
     Route: 059
     Dates: start: 202009, end: 202010

REACTIONS (2)
  - Implant site pain [Recovered/Resolved]
  - Implant site irritation [Recovered/Resolved]

NARRATIVE: CASE EVENT DATE: 202009
